FAERS Safety Report 19205793 (Version 1)
Quarter: 2021Q2

REPORT INFORMATION
  Report Type: Spontaneous
  Country: US (occurrence: US)
  Receive Date: 20210503
  Receipt Date: 20210503
  Transmission Date: 20210717
  Serious: No
  Sender: FDA-Public Use
  Company Number: US-FARMAPROD-202103-0313

PATIENT
  Age: 75 Year
  Sex: Female

DRUGS (13)
  1. RETAINE MGD [Concomitant]
     Active Substance: LIGHT MINERAL OIL\MINERAL OIL
     Dosage: 0.5%?0.5%
  2. MODERNA COVID?19 VACCINE [Concomitant]
     Active Substance: CX-024414
     Dates: start: 20210228, end: 20210228
  3. LEVOTHYROXINE. [Concomitant]
     Active Substance: LEVOTHYROXINE
  4. METOPROLOL SUCCINATE. [Concomitant]
     Active Substance: METOPROLOL SUCCINATE
  5. FISH OIL [Concomitant]
     Active Substance: FISH OIL
     Dosage: 100 MG?150 MG
  6. ESTRADIOL. [Concomitant]
     Active Substance: ESTRADIOL
  7. CALCIUM [Concomitant]
     Active Substance: CALCIUM
  8. VITAMIN C [Concomitant]
     Active Substance: ASCORBIC ACID
  9. VITAMIN B12 [Concomitant]
     Active Substance: CYANOCOBALAMIN
  10. OXERVATE [Suspect]
     Active Substance: CENEGERMIN-BKBJ
     Indication: NEUROTROPHIC KERATOPATHY
     Route: 047
     Dates: start: 20210222
  11. PRED FORTE [Concomitant]
     Active Substance: PREDNISOLONE ACETATE
  12. BACLOFEN. [Concomitant]
     Active Substance: BACLOFEN
  13. MULTIVITAMINS [Concomitant]
     Active Substance: VITAMINS

REACTIONS (4)
  - Eye irritation [Unknown]
  - Vision blurred [Unknown]
  - Ocular hyperaemia [Unknown]
  - Mydriasis [Unknown]

NARRATIVE: CASE EVENT DATE: 20210302
